FAERS Safety Report 9394375 (Version 1)
Quarter: 2013Q3

REPORT INFORMATION
  Report Type: Spontaneous
  Country: TR (occurrence: TR)
  Receive Date: 20130711
  Receipt Date: 20130711
  Transmission Date: 20140515
  Serious: Yes (Hospitalization)
  Sender: FDA-Public Use
  Company Number: TR-PAR PHARMACEUTICAL, INC-2013SCPR006024

PATIENT
  Sex: 0

DRUGS (1)
  1. OLANZAPINE [Suspect]
     Indication: CATATONIA
     Dosage: 10 MG, / DAY
     Route: 065

REACTIONS (2)
  - Thyroid function test abnormal [Not Recovered/Not Resolved]
  - Hepatic enzyme increased [Recovered/Resolved]
